FAERS Safety Report 21320718 (Version 2)
Quarter: 2022Q3

REPORT INFORMATION
  Report Type: Report from Study
  Country: ES (occurrence: ES)
  Receive Date: 20220912
  Receipt Date: 20220912
  Transmission Date: 20221027
  Serious: Yes (Life-Threatening, Hospitalization, Other)
  Sender: FDA-Public Use
  Company Number: ES-BRISTOL-MYERS SQUIBB COMPANY-2022-102438

PATIENT
  Sex: Female

DRUGS (9)
  1. NIVOLUMAB [Suspect]
     Active Substance: NIVOLUMAB
     Indication: Squamous cell carcinoma of head and neck
     Dosage: LEAD IN PHASE D14-D10
     Route: 065
     Dates: start: 20220502
  2. NIVOLUMAB [Suspect]
     Active Substance: NIVOLUMAB
     Dosage: CYCLE 1 D1
     Route: 065
     Dates: start: 20220513
  3. NIVOLUMAB [Suspect]
     Active Substance: NIVOLUMAB
     Dosage: CYCLE 2 D22
     Route: 065
     Dates: start: 20220603
  4. NIVOLUMAB [Suspect]
     Active Substance: NIVOLUMAB
     Dosage: CYCLE 3 (D43)
     Route: 065
     Dates: start: 20220627
  5. CISPLATIN [Suspect]
     Active Substance: CISPLATIN
     Indication: Squamous cell carcinoma of head and neck
     Dosage: CYCLE 1 D1 DOSE 100MG/M2
     Route: 065
     Dates: start: 20220513
  6. CISPLATIN [Suspect]
     Active Substance: CISPLATIN
     Dosage: CYCLE 2 D22 DOSE 100MG/M2
     Route: 065
     Dates: start: 20220603
  7. CISPLATIN [Suspect]
     Active Substance: CISPLATIN
     Dosage: CYCLE 3 D43 DOSE 100MG/M2
     Route: 065
     Dates: start: 20220627
  8. ATORVASTATIN [Concomitant]
     Active Substance: ATORVASTATIN
     Indication: Product used for unknown indication
     Dosage: DL
     Route: 048
  9. LEVOTHYROXINE [Concomitant]
     Active Substance: LEVOTHYROXINE
     Indication: Product used for unknown indication
     Dosage: HIPOTIR
     Route: 048

REACTIONS (1)
  - Acute kidney injury [Recovered/Resolved]

NARRATIVE: CASE EVENT DATE: 20220709
